FAERS Safety Report 11493616 (Version 1)
Quarter: 2015Q3

REPORT INFORMATION
  Report Type: Spontaneous
  Country: US (occurrence: None)
  Receive Date: 20150910
  Receipt Date: 20150910
  Transmission Date: 20151125
  Serious: Yes (Hospitalization, Other)
  Sender: FDA-Public Use
  Company Number: None

PATIENT
  Age: 52 Year
  Sex: Female
  Weight: 66.68 kg

DRUGS (4)
  1. METOPROLOL [Concomitant]
     Active Substance: METOPROLOL
  2. ZOSYN [Concomitant]
     Active Substance: PIPERACILLIN SODIUM\TAZOBACTAM SODIUM
  3. ASPIRIN. [Concomitant]
     Active Substance: ASPIRIN
  4. XARELTO [Suspect]
     Active Substance: RIVAROXABAN
     Indication: PULMONARY EMBOLISM
     Route: 048
     Dates: start: 20150904, end: 20150907

REACTIONS (1)
  - Ischaemic stroke [None]

NARRATIVE: CASE EVENT DATE: 20150907
